FAERS Safety Report 12195951 (Version 1)
Quarter: 2016Q1

REPORT INFORMATION
  Report Type: Spontaneous
  Country: US (occurrence: US)
  Receive Date: 20160321
  Receipt Date: 20160321
  Transmission Date: 20160526
  Serious: Yes (Other)
  Sender: FDA-Public Use
  Company Number: US-CELGENE-USA-2016031761

PATIENT
  Sex: Male

DRUGS (1)
  1. REVLIMID [Suspect]
     Active Substance: LENALIDOMIDE
     Indication: MYELODYSPLASTIC SYNDROME TRANSFORMATION
     Dosage: 10 MILLIGRAM
     Route: 048
     Dates: start: 20160215

REACTIONS (5)
  - Asthenia [Unknown]
  - Eye haemorrhage [Unknown]
  - Platelet count decreased [Unknown]
  - Full blood count decreased [Unknown]
  - Haemorrhage [Unknown]
